FAERS Safety Report 10475419 (Version 1)
Quarter: 2014Q3

REPORT INFORMATION
  Report Type: Spontaneous
  Country: US (occurrence: None)
  Receive Date: 20140924
  Receipt Date: 20140924
  Transmission Date: 20150326
  Serious: Yes (Hospitalization)
  Sender: FDA-Public Use
  Company Number: None

PATIENT
  Age: 74 Year
  Sex: Male
  Weight: 76.7 kg

DRUGS (7)
  1. LORATIDINE [Concomitant]
     Active Substance: LORATADINE
  2. ALLOPURINOL. [Concomitant]
     Active Substance: ALLOPURINOL
  3. COUMADIN [Suspect]
     Active Substance: WARFARIN SODIUM
     Indication: DEEP VEIN THROMBOSIS
     Dosage: CHRONIC??5MG?SSMTWF?PO?CHRONIC
     Route: 048
  4. RANITIDINE [Concomitant]
     Active Substance: RANITIDINE\RANITIDINE HYDROCHLORIDE
  5. AMITRIPTYLINE [Concomitant]
     Active Substance: AMITRIPTYLINE
  6. CLARITIN [Concomitant]
     Active Substance: LORATADINE
  7. APAP/HYDROCODONE [Concomitant]
     Active Substance: ACETAMINOPHEN\HYDROCODONE

REACTIONS (4)
  - Haemoptysis [None]
  - Haemorrhagic anaemia [None]
  - Thrombocytopenia [None]
  - Pneumonia [None]

NARRATIVE: CASE EVENT DATE: 20140321
